FAERS Safety Report 7439895-6 (Version None)
Quarter: 2011Q2

REPORT INFORMATION
  Report Type: 
  Country: None (occurrence: None)
  Receive Date: 20110427
  Receipt Date: 20110418
  Transmission Date: 20111010
  Serious: Yes (Hospitalization)
  Sender: FDA-Public Use
  Company Number: CA-TEVA-278211USA

PATIENT
  Age: 77 Year
  Sex: Male
  Weight: 95 kg

DRUGS (9)
  1. TAMSULOSIN HCL [Suspect]
     Dosage: .4 MILLIGRAM;
     Route: 048
  2. ATORVASTATIN CALCIUM [Concomitant]
  3. METFORMIN [Concomitant]
  4. DOCUSATE SODIUM [Concomitant]
  5. QUETIAPINE [Suspect]
     Dosage: 75 MILLIGRAM;
  6. RAMIPRIL [Suspect]
     Dosage: 2.5 MILLIGRAM;
     Route: 048
  7. QUETIAPINE [Suspect]
  8. AMLODIPINE [Concomitant]
  9. ENOXAPARIN [Concomitant]

REACTIONS (4)
  - BLOOD CREATININE INCREASED [None]
  - LIP SWELLING [None]
  - OEDEMA MOUTH [None]
  - RASH ERYTHEMATOUS [None]
